FAERS Safety Report 12832997 (Version 1)
Quarter: 2016Q4

REPORT INFORMATION
  Report Type: Report from Study
  Country: US (occurrence: US)
  Receive Date: 20161010
  Receipt Date: 20161010
  Transmission Date: 20170207
  Serious: Yes (Death)
  Sender: FDA-Public Use
  Company Number: US-B.I. PHARMACEUTICALS,INC./RIDGEFIELD-2016-BI-065022

PATIENT
  Sex: Female

DRUGS (2)
  1. ACTILYSE CATHFLO [Suspect]
     Active Substance: ALTEPLASE
     Indication: CEREBRAL INFARCTION
     Route: 065
     Dates: start: 20160608
  2. ACTILYSE CATHFLO [Suspect]
     Active Substance: ALTEPLASE
     Route: 065
     Dates: start: 20160617

REACTIONS (1)
  - Death [Fatal]
